FAERS Safety Report 7400098-2 (Version None)
Quarter: 2011Q2

REPORT INFORMATION
  Report Type: 
  Country: None (occurrence: None)
  Receive Date: 20110407
  Receipt Date: 20100617
  Transmission Date: 20111010
  Serious: Yes (Other)
  Sender: FDA-Public Use
  Company Number: PHHY2010DE91066

PATIENT
  Sex: Female

DRUGS (1)
  1. EXTAVIA [Suspect]
     Dosage: UNK
     Dates: start: 20100514

REACTIONS (8)
  - CENTRAL NERVOUS SYSTEM LESION [None]
  - GENERAL PHYSICAL HEALTH DETERIORATION [None]
  - CARDIAC FAILURE [None]
  - EYE DISORDER [None]
  - GAIT DISTURBANCE [None]
  - FEELING ABNORMAL [None]
  - INJECTION SITE ERYTHEMA [None]
  - BLADDER DISORDER [None]
